FAERS Safety Report 14128398 (Version 2)
Quarter: 2018Q1

REPORT INFORMATION
  Report Type: Spontaneous
  Country: JP (occurrence: JP)
  Receive Date: 20171026
  Receipt Date: 20180208
  Transmission Date: 20180508
  Serious: Yes (Death)
  Sender: FDA-Public Use
  Company Number: JP-ELI_LILLY_AND_COMPANY-JP201710009756AA

PATIENT
  Age: 66 Year
  Sex: Male

DRUGS (4)
  1. PACLITAXEL. [Concomitant]
     Active Substance: PACLITAXEL
     Indication: GASTRIC CANCER
     Dosage: 80 MG/M2, CYCLICAL
     Route: 042
     Dates: start: 20170517, end: 2017
  2. CYRAMZA [Suspect]
     Active Substance: RAMUCIRUMAB
     Indication: GASTRIC CANCER
     Dosage: 8 MG/KG, CYCLICAL
     Route: 042
     Dates: start: 20170517, end: 2017
  3. CYRAMZA [Suspect]
     Active Substance: RAMUCIRUMAB
     Dosage: 6.4 MG/KG, CYCLICAL
     Route: 042
     Dates: start: 2017, end: 20170712
  4. PACLITAXEL. [Concomitant]
     Active Substance: PACLITAXEL
     Dosage: 64 MG/M2, CYCLICAL
     Route: 042
     Dates: start: 2017, end: 20170712

REACTIONS (2)
  - Interstitial lung disease [Fatal]
  - Neuropathy peripheral [Unknown]

NARRATIVE: CASE EVENT DATE: 2017
